FAERS Safety Report 9248344 (Version 1)
Quarter: 2013Q1

REPORT INFORMATION
  Report Type: Spontaneous
  Country: US (occurrence: None)
  Receive Date: 20130305
  Receipt Date: 20130305
  Transmission Date: 20140127
  Serious: Yes (Disabling)
  Sender: FDA-Public Use
  Company Number: 163-21880-12092050

PATIENT
  Age: 66 Year
  Sex: Male

DRUGS (6)
  1. REVLIMID [Suspect]
     Indication: PLASMA CELL MYELOMA
     Dosage: 15 MG, 21 IN 28 D, PO
     Dates: start: 20120711
  2. AMLODIPINE (AMLODIPINE) [Concomitant]
  3. METFORMIN (METFORMIN) [Concomitant]
  4. ACYCLOVIR (ACICLOVIR) [Concomitant]
  5. DEXAMETHASONE (DEXAMETHASONE) [Concomitant]
  6. LYRICA (PREGABALIN) [Suspect]

REACTIONS (2)
  - Neuropathy peripheral [None]
  - Rash [None]
